FAERS Safety Report 13994050 (Version 1)
Quarter: 2017Q3

REPORT INFORMATION
  Report Type: Spontaneous
  Country: US (occurrence: US)
  Receive Date: 20170920
  Receipt Date: 20170920
  Transmission Date: 20171128
  Serious: Yes (Other)
  Sender: FDA-Public Use
  Company Number: US-MYLANLABS-2017M1056881

PATIENT
  Sex: Female

DRUGS (1)
  1. FENTANYL TRANSDERMAL SYSTEM [Suspect]
     Active Substance: FENTANYL
     Indication: PAIN
     Dosage: 37.5 ?G, QH, CHANGE Q72H
     Route: 062
     Dates: start: 20170901, end: 20170905

REACTIONS (6)
  - Blood pressure increased [Recovered/Resolved]
  - Palpitations [Recovered/Resolved]
  - Muscle rigidity [Recovered/Resolved]
  - Drug effect increased [Recovered/Resolved]
  - Dysgeusia [Recovered/Resolved]
  - Heart rate increased [Recovered/Resolved]

NARRATIVE: CASE EVENT DATE: 20170901
